FAERS Safety Report 5130849-1 (Version None)
Quarter: 2006Q4

REPORT INFORMATION
  Report Type: 
  Country: None (occurrence: None)
  Receive Date: 20061013
  Receipt Date: 20060511
  Transmission Date: 20070319
  Serious: No
  Sender: FDA-Public Use
  Company Number: S06-USA-01425-01

PATIENT
  Age: 55 Year
  Sex: Male

DRUGS (3)
  1. AEROBID [Suspect]
     Indication: ASTHMA
  2. FLUTICASONE PROPIONATE [Suspect]
  3. SALBUTAMOL [Concomitant]

REACTIONS (2)
  - CRYPTOCOCCOSIS [None]
  - LARYNGITIS [None]
